FAERS Safety Report 5611274-3 (Version None)
Quarter: 2008Q1

REPORT INFORMATION
  Report Type: 
  Country: None (occurrence: None)
  Receive Date: 20080201
  Receipt Date: 20080121
  Transmission Date: 20080703
  Serious: Yes (Life-Threatening, Hospitalization)
  Sender: FDA-Public Use
  Company Number: GB-WYE-H00728407

PATIENT
  Age: 65 Year
  Sex: Female

DRUGS (15)
  1. AMIODARONE [Suspect]
     Indication: ATRIAL FLUTTER
     Route: 048
  2. AMIODARONE [Suspect]
     Route: 048
  3. AMIODARONE [Suspect]
     Route: 048
  4. CALCICHEW [Concomitant]
     Dosage: DOSE AND FREQUENCY NOT SPECIFIED
     Route: 065
  5. CHLORPHENAMINE [Concomitant]
     Dosage: DOSE AND FREQUENCY NOT SPECIFIED
     Route: 065
  6. FUROSEMIDE [Concomitant]
     Dosage: DOSE AND FREQUENCY NOT SPECIFIED
     Route: 065
  7. ZOPICLONE [Concomitant]
     Dosage: DOSE AND FREQUENCY NOT SPECIFIED
     Route: 065
  8. LEVOTHYROXINE SODIUM [Concomitant]
     Indication: HYPOTHYROIDISM
     Dosage: DOSE AND FREQUENCY NOT SPECIFIED
     Route: 065
  9. MOVICOL [Concomitant]
     Dosage: DOSE AND FREQUENCY NOT SPECIFIED
     Route: 065
  10. NOVORAPID [Concomitant]
     Indication: DIABETES MELLITUS
     Dosage: DOSE AND FREQUENCY NOT SPECIFIED
     Route: 065
  11. PAROXETINE [Concomitant]
     Dosage: DOSE AND FREQUENCY NOT SPECIFIED
     Route: 065
  12. RAMIPRIL [Concomitant]
     Indication: HYPERTENSION
     Dosage: DOSE AND FREQUENCY NOT SPECIFIED
     Route: 065
  13. BISOPROLOL [Concomitant]
     Dosage: DOSE AND FREQUENCY NOT SPECIFIED
     Route: 065
  14. BISOPROLOL [Concomitant]
     Dosage: DOSE AND FREQUENCY NOT SPECIFIED
     Route: 065
  15. INSULATARD [Concomitant]
     Indication: DIABETES MELLITUS
     Dosage: DOSE AND FREQUENCY NOT SPECIFIED
     Route: 065

REACTIONS (4)
  - BRADYCARDIA [None]
  - ELECTROCARDIOGRAM QT PROLONGED [None]
  - SYNCOPE [None]
  - TORSADE DE POINTES [None]
